FAERS Safety Report 16058130 (Version 1)
Quarter: 2019Q1

REPORT INFORMATION
  Report Type: Spontaneous
  Country: NL (occurrence: NL)
  Receive Date: 20190311
  Receipt Date: 20190311
  Transmission Date: 20190418
  Serious: Yes (Hospitalization)
  Sender: FDA-Public Use
  Company Number: NL-TEVA-2019-NL-1021545

PATIENT
  Age: 71 Year
  Sex: Female
  Weight: 85 kg

DRUGS (6)
  1. LITHIUM. [Concomitant]
     Active Substance: LITHIUM
  2. CODEINE [Concomitant]
     Active Substance: CODEINE
  3. FLURAZEPAM [Concomitant]
     Active Substance: FLURAZEPAM\FLURAZEPAM HYDROCHLORIDE
  4. TRAMADOL BRUISTABLET, 50 MG (MILLIGRAM) [Suspect]
     Active Substance: TRAMADOL
     Indication: PAIN
     Dosage: INCREASED FROM 1 TO 3 TIMES DAILY 1
     Dates: start: 2013, end: 20180801
  5. VALPROINEZUUR [Concomitant]
     Active Substance: VALPROIC ACID
  6. OLANZAPINE. [Concomitant]
     Active Substance: OLANZAPINE

REACTIONS (3)
  - Disturbance in attention [Recovered/Resolved]
  - Confusional state [Recovered/Resolved]
  - Agitation [Recovered/Resolved]

NARRATIVE: CASE EVENT DATE: 20180801
